FAERS Safety Report 21095568 (Version 9)
Quarter: 2023Q2

REPORT INFORMATION
  Report Type: Spontaneous
  Country: US (occurrence: US)
  Receive Date: 20220718
  Receipt Date: 20230629
  Transmission Date: 20230721
  Serious: No
  Sender: FDA-Public Use
  Company Number: US-PFIZER INC-PV202200024137

PATIENT
  Age: 63 Year
  Sex: Female

DRUGS (4)
  1. IBRANCE [Suspect]
     Active Substance: PALBOCICLIB
     Dosage: 125 MG
  2. IBRANCE [Suspect]
     Active Substance: PALBOCICLIB
     Dosage: UNK
     Dates: start: 20220801
  3. IBRANCE [Suspect]
     Active Substance: PALBOCICLIB
     Dosage: UNK
     Dates: end: 2022
  4. IBRANCE [Suspect]
     Active Substance: PALBOCICLIB
     Dosage: 100 MG

REACTIONS (12)
  - Diarrhoea [Unknown]
  - White blood cell count decreased [Not Recovered/Not Resolved]
  - Constipation [Unknown]
  - Back pain [Unknown]
  - Abdominal discomfort [Unknown]
  - Nausea [Unknown]
  - Cough [Not Recovered/Not Resolved]
  - Rhinorrhoea [Not Recovered/Not Resolved]
  - Hypersensitivity [Not Recovered/Not Resolved]
  - Epistaxis [Unknown]
  - Blood test abnormal [Unknown]
  - Neoplasm progression [Unknown]
